FAERS Safety Report 23814365 (Version 1)
Quarter: 2024Q2

REPORT INFORMATION
  Report Type: Spontaneous
  Country: US (occurrence: US)
  Receive Date: 20240503
  Receipt Date: 20240503
  Transmission Date: 20240716
  Serious: Yes (Hospitalization)
  Sender: FDA-Public Use
  Company Number: US-HALEON-2169875

PATIENT
  Age: 62 Year
  Sex: Female
  Weight: 72.6 kg

DRUGS (16)
  1. DEXTROMETHORPHAN HYDROBROMIDE [Suspect]
     Active Substance: DEXTROMETHORPHAN HYDROBROMIDE
     Indication: Cough
  2. TYVASO [Suspect]
     Active Substance: TREPROSTINIL
     Indication: Pulmonary arterial hypertension
     Route: 055
     Dates: end: 202402
  3. TYVASO [Suspect]
     Active Substance: TREPROSTINIL
     Route: 055
     Dates: start: 202402
  4. TYVASO [Suspect]
     Active Substance: TREPROSTINIL
     Route: 055
  5. TYVASO [Suspect]
     Active Substance: TREPROSTINIL
     Route: 055
     Dates: start: 20231219
  6. ADVIL [Concomitant]
     Active Substance: IBUPROFEN
     Indication: Product used for unknown indication
  7. OPSUMIT [Concomitant]
     Active Substance: MACITENTAN
     Indication: Product used for unknown indication
  8. Tizanidine HCL (Tizanidine hydrochloride) [Concomitant]
     Indication: Product used for unknown indication
  9. Albuterol sulfate hfa (Salbutamol sulfate) [Concomitant]
     Indication: Product used for unknown indication
  10. Fluticasone + salmeterol (Fluticasone propionate, Salmeterol xinafo... [Concomitant]
     Indication: Product used for unknown indication
  11. SILDENAFIL CITRATE [Concomitant]
     Active Substance: SILDENAFIL CITRATE
     Indication: Product used for unknown indication
  12. Amitriptyline HCL (Amitriptyline hydrochloride) [Concomitant]
     Indication: Product used for unknown indication
  13. Suboxone (Buprenorphine hydrochloride, Naloxone hydrochloride) [Concomitant]
     Indication: Product used for unknown indication
  14. OXYGEN [Concomitant]
     Active Substance: OXYGEN
     Indication: Product used for unknown indication
  15. FUROSEMIDE [Concomitant]
     Active Substance: FUROSEMIDE
     Indication: Product used for unknown indication
  16. BENZONATATE [Concomitant]
     Active Substance: BENZONATATE
     Indication: Product used for unknown indication

REACTIONS (9)
  - Dermatitis allergic [Unknown]
  - Cough [Not Recovered/Not Resolved]
  - Lip swelling [Unknown]
  - Erythema [Unknown]
  - Skin irritation [Unknown]
  - Sinus disorder [Unknown]
  - Dry throat [Unknown]
  - Dyspnoea [Not Recovered/Not Resolved]
  - Therapy non-responder [Unknown]

NARRATIVE: CASE EVENT DATE: 20240226
